FAERS Safety Report 16598433 (Version 1)
Quarter: 2019Q3

REPORT INFORMATION
  Report Type: Spontaneous
  Country: RU (occurrence: RU)
  Receive Date: 20190719
  Receipt Date: 20190719
  Transmission Date: 20191004
  Serious: Yes (Other)
  Sender: FDA-Public Use
  Company Number: RU-UCBSA-2019030232

PATIENT

DRUGS (1)
  1. KEPPRA [Suspect]
     Active Substance: LEVETIRACETAM
     Indication: SEIZURE
     Dosage: REDUCED DOSE

REACTIONS (5)
  - Seizure [Unknown]
  - Insomnia [Unknown]
  - Asthenia [Unknown]
  - Emotional disorder [Recovering/Resolving]
  - Depression [Unknown]
